FAERS Safety Report 6151772-X (Version None)
Quarter: 2009Q2

REPORT INFORMATION
  Report Type: 
  Country: None (occurrence: None)
  Receive Date: 20090410
  Receipt Date: 20090409
  Transmission Date: 20091009
  Serious: Yes (Hospitalization)
  Sender: FDA-Public Use
  Company Number: B0568992A

PATIENT
  Sex: Male

DRUGS (8)
  1. AUGMENTIN '125' [Suspect]
     Indication: BRONCHITIS
     Dosage: 1G THREE TIMES PER DAY
     Route: 048
     Dates: end: 20090312
  2. DEROXAT [Suspect]
     Indication: DRUG USE FOR UNKNOWN INDICATION
     Dosage: 30MG PER DAY
     Route: 048
     Dates: end: 20090312
  3. SINTROM [Suspect]
     Indication: DRUG USE FOR UNKNOWN INDICATION
     Dosage: 2MG TWICE PER DAY
     Route: 048
     Dates: start: 20090312
  4. PREDNISOLONE [Suspect]
     Indication: BRONCHITIS
     Dosage: 80MG PER DAY
     Route: 048
     Dates: end: 20090312
  5. HYTACAND [Concomitant]
     Indication: DRUG USE FOR UNKNOWN INDICATION
     Dosage: .5TAB PER DAY
     Route: 048
  6. LECTIL [Concomitant]
     Indication: DRUG USE FOR UNKNOWN INDICATION
     Dosage: 24MG PER DAY
     Route: 048
     Dates: end: 20090312
  7. BUSPAR [Concomitant]
     Indication: DRUG USE FOR UNKNOWN INDICATION
     Dosage: 10MG THREE TIMES PER DAY
     Route: 048
     Dates: end: 20090312
  8. DIGITALINE NATIVELLE [Concomitant]
     Indication: DRUG USE FOR UNKNOWN INDICATION
     Dosage: .25MG TWICE PER DAY
     Route: 048

REACTIONS (6)
  - ANAEMIA [None]
  - DRUG INTERACTION [None]
  - MELAENA [None]
  - OVERDOSE [None]
  - PALLOR [None]
  - PROTHROMBIN TIME RATIO DECREASED [None]
